FAERS Safety Report 25606789 (Version 2)
Quarter: 2025Q3

REPORT INFORMATION
  Report Type: Spontaneous
  Country: EU (occurrence: EU)
  Receive Date: 20250725
  Receipt Date: 20250805
  Transmission Date: 20251021
  Serious: Yes (Other)
  Sender: ALEXION PHARMACEUTICALS
  Company Number: EU-AstraZeneca-CH-00914258A

PATIENT
  Age: 76 Year
  Sex: Female

DRUGS (1)
  1. DAPAGLIFLOZIN [Suspect]
     Active Substance: DAPAGLIFLOZIN
     Indication: Cardiac failure
     Dosage: 10 MILLIGRAM, QD
     Dates: start: 202503, end: 202503

REACTIONS (6)
  - Hypoglycaemic coma [Recovered/Resolved]
  - Coma [Unknown]
  - Cardiac failure [Unknown]
  - Weight decreased [Unknown]
  - Decreased appetite [Unknown]
  - Off label use [Unknown]

NARRATIVE: CASE EVENT DATE: 20250301
